FAERS Safety Report 13303148 (Version 1)
Quarter: 2017Q1

REPORT INFORMATION
  Report Type: Spontaneous
  Country: DE (occurrence: DE)
  Receive Date: 20170307
  Receipt Date: 20170307
  Transmission Date: 20170428
  Serious: Yes (Life-Threatening, Other)
  Sender: FDA-Public Use
  Company Number: GXKR2017DE001214

PATIENT

DRUGS (1)
  1. FLUOXETIN 1A PHARMA [Suspect]
     Active Substance: FLUOXETINE HYDROCHLORIDE
     Indication: MOOD SWINGS
     Dosage: 10 MG, ONCE DAILY
     Route: 048
     Dates: start: 20170202, end: 20170210

REACTIONS (6)
  - Dissociative disorder [Recovered/Resolved]
  - Initial insomnia [Unknown]
  - Memory impairment [Unknown]
  - Nightmare [Recovered/Resolved]
  - Suicidal behaviour [Recovered/Resolved]
  - Restlessness [Recovered/Resolved]

NARRATIVE: CASE EVENT DATE: 201702
